FAERS Safety Report 5233822-8 (Version None)
Quarter: 2007Q1

REPORT INFORMATION
  Report Type: 
  Country: None (occurrence: None)
  Receive Date: 20070208
  Receipt Date: 20070126
  Transmission Date: 20070707
  Serious: Yes (Disabling, Other)
  Sender: FDA-Public Use
  Company Number: DE-ELI_LILLY_AND_COMPANY-DE200701005615

PATIENT
  Sex: Female
  Weight: 61 kg

DRUGS (4)
  1. GEMCITABINE HCL [Suspect]
     Indication: BREAST CANCER
     Dosage: 1000 MG, UNK
     Route: 042
     Dates: start: 20060724, end: 20060911
  2. *DOCETAXEL [Suspect]
     Indication: BREAST CANCER
     Dosage: 75 MG, UNK
     Route: 042
     Dates: start: 20060724, end: 20060904
  3. ZOLEDRONIC ACID [Suspect]
     Indication: BREAST CANCER
     Dates: start: 20061018, end: 20070110
  4. CALCIMAGON [Concomitant]
     Dosage: 1.25 G, UNK
     Route: 048
     Dates: start: 20061018

REACTIONS (1)
  - TOOTH LOSS [None]
